FAERS Safety Report 19692843 (Version 1)
Quarter: 2021Q3

REPORT INFORMATION
  Report Type: Spontaneous
  Country: US (occurrence: US)
  Receive Date: 20210812
  Receipt Date: 20210812
  Transmission Date: 20211014
  Serious: Yes (Other)
  Sender: FDA-Public Use
  Company Number: US-ASTRAZENECA-2021A672042

PATIENT
  Age: 59 Year
  Sex: Female
  Weight: 61.7 kg

DRUGS (6)
  1. CHOLESTEROL MEDICATION [Concomitant]
     Active Substance: UNSPECIFIED INGREDIENT
     Indication: BLOOD CHOLESTEROL
  2. PROVENTIL [Suspect]
     Active Substance: ALBUTEROL
     Indication: CHRONIC OBSTRUCTIVE PULMONARY DISEASE
     Dosage: UNKNOWN DOSE ONE PUFF ONCE DAILY
     Route: 065
  3. SYMBICORT [Suspect]
     Active Substance: BUDESONIDE\FORMOTEROL FUMARATE DIHYDRATE
     Indication: CHRONIC OBSTRUCTIVE PULMONARY DISEASE
     Dosage: UNKNOWN DOSE. ONE PUFF DAILY INHALED
     Route: 055
     Dates: start: 2018
  4. SPIRIVA [Suspect]
     Active Substance: TIOTROPIUM BROMIDE MONOHYDRATE
     Indication: CHRONIC OBSTRUCTIVE PULMONARY DISEASE
     Route: 055
     Dates: start: 202010
  5. CHANTIX [Suspect]
     Active Substance: VARENICLINE TARTRATE
     Indication: EX-TOBACCO USER
     Dosage: 0.85MG SHE ONLY TOOK ONE TABLET THEN STOPPED
     Route: 065
  6. WIXELA INHUB [Suspect]
     Active Substance: FLUTICASONE PROPIONATE\SALMETEROL XINAFOATE
     Indication: CHRONIC OBSTRUCTIVE PULMONARY DISEASE
     Dosage: 250/50MCG SHE THINKS AND IT WAS ONE PUFF DAILY
     Route: 065
     Dates: start: 2019

REACTIONS (5)
  - Candida infection [Unknown]
  - Feeding disorder [Unknown]
  - Speech disorder [Unknown]
  - Chest pain [Recovered/Resolved]
  - Laryngeal cancer [Unknown]

NARRATIVE: CASE EVENT DATE: 2018
